FAERS Safety Report 17531305 (Version 1)
Quarter: 2020Q1

REPORT INFORMATION
  Report Type: Spontaneous
  Country: US (occurrence: US)
  Receive Date: 20200311
  Receipt Date: 20200311
  Transmission Date: 20200409
  Serious: No
  Sender: FDA-Public Use
  Company Number: None

PATIENT
  Age: 70 Year
  Sex: Female
  Weight: 81.9 kg

DRUGS (1)
  1. ENHERTU [Suspect]
     Active Substance: FAM-TRASTUZUMAB DERUXTECAN-NXKI
     Indication: BREAST CANCER METASTATIC
     Dosage: ?          OTHER FREQUENCY:EVERY THREE WEEKS;?
     Route: 042
     Dates: start: 20200123

REACTIONS (22)
  - Taste disorder [None]
  - Ageusia [None]
  - Cough [None]
  - Constipation [None]
  - Gastrooesophageal reflux disease [None]
  - White blood cell count decreased [None]
  - Nephrolithiasis [None]
  - Heart rate irregular [None]
  - Infusion related reaction [None]
  - Decreased appetite [None]
  - Alopecia [None]
  - Sneezing [None]
  - Rash [None]
  - Blood potassium decreased [None]
  - Neuropathy peripheral [None]
  - Gingival pain [None]
  - Abdominal pain [None]
  - Anosmia [None]
  - Diarrhoea [None]
  - Nausea [None]
  - Vomiting [None]
  - Weight decreased [None]

NARRATIVE: CASE EVENT DATE: 20200124
